FAERS Safety Report 12139799 (Version 4)
Quarter: 2017Q3

REPORT INFORMATION
  Report Type: Report from Study
  Country: FR (occurrence: FR)
  Receive Date: 20160303
  Receipt Date: 20170711
  Transmission Date: 20171127
  Serious: Yes (Hospitalization, Other)
  Sender: FDA-Public Use
  Company Number: PHHY2015FR083879

PATIENT
  Age: 84 Year
  Sex: Female

DRUGS (6)
  1. AROMASINE [Concomitant]
     Active Substance: EXEMESTANE
     Indication: BREAST CANCER
     Dosage: 25 MG, Q24H
     Route: 065
  2. LASILIX [Concomitant]
     Active Substance: FUROSEMIDE
     Indication: HYPERTENSION
     Dosage: 20 MG, UNK
     Route: 065
  3. AFINITOR [Suspect]
     Active Substance: EVEROLIMUS
     Indication: BREAST CANCER
     Dosage: 10 MG, DAY
     Route: 048
     Dates: start: 20150304, end: 20150416
  4. EXEMESTANE. [Suspect]
     Active Substance: EXEMESTANE
     Indication: PRODUCT USED FOR UNKNOWN INDICATION
     Dosage: 25 MG, QD
     Route: 065
     Dates: start: 20150304, end: 20151014
  5. SEROPLEX [Concomitant]
     Active Substance: ESCITALOPRAM OXALATE
     Indication: DEPRESSION
     Dosage: 10 MG, UNK
     Route: 065
  6. CARDENSIEL [Concomitant]
     Active Substance: BISOPROLOL FUMARATE
     Indication: HYPERTENSION
     Dosage: 2.5 MG, UNK
     Route: 065

REACTIONS (17)
  - Pleural effusion [Unknown]
  - Hypoxia [Recovering/Resolving]
  - Interstitial lung disease [Recovered/Resolved]
  - Wheezing [Unknown]
  - Cough [Unknown]
  - General physical health deterioration [Recovered/Resolved]
  - Palpitations [Unknown]
  - Tachypnoea [Unknown]
  - Chest discomfort [Unknown]
  - Cyanosis [Unknown]
  - Malaise [Unknown]
  - Pyrexia [Recovered/Resolved]
  - Fatigue [Unknown]
  - Fracture [Recovered/Resolved with Sequelae]
  - Dyspnoea [Unknown]
  - Crepitations [Unknown]
  - Hypotension [Unknown]

NARRATIVE: CASE EVENT DATE: 20150416
